FAERS Safety Report 6371708-6 (Version None)
Quarter: 2009Q3

REPORT INFORMATION
  Report Type: 
  Country: None (occurrence: None)
  Receive Date: 20090923
  Receipt Date: 20081210
  Transmission Date: 20100115
  Serious: No
  Sender: FDA-Public Use
  Company Number: US-ASTRAZENECA-2008UW14639

PATIENT
  Age: 24 Year
  Sex: Female
  Weight: 104.3 kg

DRUGS (6)
  1. SEROQUEL [Suspect]
     Indication: DEPRESSION
     Dosage: 25 MG, 100 MG
     Route: 048
     Dates: start: 20030315, end: 20050801
  2. SEROQUEL [Suspect]
     Indication: SLEEP DISORDER
     Dosage: 25 MG, 100 MG
     Route: 048
     Dates: start: 20030315, end: 20050801
  3. ZYPREXA [Concomitant]
     Dosage: 2.5 MG, 5 MG
     Dates: start: 20031101, end: 20031201
  4. EFFEXOR [Concomitant]
  5. PAXIL [Concomitant]
  6. WELLBUTRIN [Concomitant]

REACTIONS (7)
  - APPENDICITIS [None]
  - ARTHRITIS [None]
  - BACK PAIN [None]
  - BLOOD CHOLESTEROL INCREASED [None]
  - GASTROOESOPHAGEAL REFLUX DISEASE [None]
  - OBESITY [None]
  - TYPE 2 DIABETES MELLITUS [None]
